FAERS Safety Report 8044707-6 (Version None)
Quarter: 2012Q1

REPORT INFORMATION
  Report Type: 
  Country: None (occurrence: None)
  Receive Date: 20120113
  Receipt Date: 20120109
  Transmission Date: 20120608
  Serious: Yes (Other)
  Sender: FDA-Public Use
  Company Number: US-PFIZER INC-2012008173

PATIENT
  Sex: Female

DRUGS (2)
  1. XALATAN [Suspect]
  2. GENTEAL [Concomitant]
     Indication: DRY EYE

REACTIONS (3)
  - HYPOACUSIS [None]
  - RASH [None]
  - DERMATITIS [None]
